FAERS Safety Report 18119997 (Version 2)
Quarter: 2020Q3

REPORT INFORMATION
  Report Type: Spontaneous
  Country: US (occurrence: US)
  Receive Date: 20200806
  Receipt Date: 20200814
  Transmission Date: 20201103
  Serious: No
  Sender: FDA-Public Use
  Company Number: US-009507513-2008USA000380

PATIENT
  Age: 28 Year
  Sex: Female

DRUGS (2)
  1. VARIVAX [Suspect]
     Active Substance: VARICELLA-ZOSTER VIRUS STRAIN OKA/MERCK LIVE ANTIGEN
     Indication: PROPHYLAXIS
     Route: 058
     Dates: start: 20200701
  2. STERILE DILUENT (WATER) [Suspect]
     Active Substance: WATER
     Dosage: 0.5 ML

REACTIONS (3)
  - Varicella virus test negative [Not Recovered/Not Resolved]
  - Rash vesicular [Not Recovered/Not Resolved]
  - Pyrexia [Not Recovered/Not Resolved]

NARRATIVE: CASE EVENT DATE: 20200714
